FAERS Safety Report 5514900-2 (Version None)
Quarter: 2007Q4

REPORT INFORMATION
  Report Type: 
  Country: None (occurrence: None)
  Receive Date: 20071113
  Receipt Date: 20060925
  Transmission Date: 20080405
  Serious: No
  Sender: FDA-Public Use
  Company Number: A0621301A

PATIENT
  Age: 83 Year
  Sex: Female

DRUGS (4)
  1. COREG [Suspect]
     Dosage: 6.25MG TWICE PER DAY
     Route: 048
  2. RYTHMOL [Concomitant]
  3. LASIX [Concomitant]
  4. LOVASTATIN [Concomitant]

REACTIONS (3)
  - ABDOMINAL DISTENSION [None]
  - FATIGUE [None]
  - WEIGHT INCREASED [None]
